FAERS Safety Report 4851417-2 (Version None)
Quarter: 2005Q4

REPORT INFORMATION
  Report Type: 
  Country: None (occurrence: None)
  Receive Date: 20051212
  Receipt Date: 20051130
  Transmission Date: 20060501
  Serious: Yes (Hospitalization, Other)
  Sender: FDA-Public Use
  Company Number: JP-BRISTOL-MYERS SQUIBB COMPANY-13207659

PATIENT
  Age: 6 Year
  Sex: Male

DRUGS (8)
  1. ENDOXAN [Suspect]
     Indication: NEUROBLASTOMA
  2. VINCRISTINE SULFATE [Suspect]
     Indication: NEUROBLASTOMA
  3. CISPLATIN [Suspect]
     Indication: NEUROBLASTOMA
  4. ETOPOSIDE [Suspect]
     Indication: NEUROBLASTOMA
  5. CARBOPLATIN [Suspect]
     Indication: NEUROBLASTOMA
  6. DACARBAZINE [Suspect]
     Indication: NEUROBLASTOMA
  7. PIRARUBICIN HCL [Suspect]
     Indication: NEUROBLASTOMA
  8. MELPHALAN [Suspect]
     Indication: NEUROBLASTOMA

REACTIONS (2)
  - CARDIAC FAILURE [None]
  - RENAL FAILURE ACUTE [None]
